FAERS Safety Report 5453625-9 (Version None)
Quarter: 2007Q3

REPORT INFORMATION
  Report Type: 
  Country: None (occurrence: None)
  Receive Date: 20070917
  Receipt Date: 20070905
  Transmission Date: 20080115
  Serious: Yes (Death, Hospitalization)
  Sender: FDA-Public Use
  Company Number: CA-JNJFOC-20061000857

PATIENT
  Sex: Male
  Weight: 70 kg

DRUGS (9)
  1. REMICADE [Suspect]
     Indication: ARTHRITIS
     Route: 042
  2. METHOTREXATE [Concomitant]
  3. REMINYL [Concomitant]
  4. COUMADIN [Concomitant]
  5. DIDROCAL [Concomitant]
  6. TYLENOL (CAPLET) [Concomitant]
  7. TIAZAC [Concomitant]
  8. EFFEXOR [Concomitant]
  9. FOLIC ACID [Concomitant]
     Dosage: 6 DAYS A WEEK

REACTIONS (4)
  - CARDIAC FAILURE CONGESTIVE [None]
  - DEATH [None]
  - INTESTINAL OBSTRUCTION [None]
  - PNEUMONIA [None]
